FAERS Safety Report 11880911 (Version 1)
Quarter: 2015Q4

REPORT INFORMATION
  Report Type: Spontaneous
  Country: US (occurrence: US)
  Receive Date: 20151230
  Receipt Date: 20151230
  Transmission Date: 20160305
  Serious: Yes (Hospitalization, Other)
  Sender: FDA-Public Use
  Company Number: ALCN2015US008016

PATIENT
  Sex: Male

DRUGS (2)
  1. PREDNISOLONE ACETATE. [Suspect]
     Active Substance: PREDNISOLONE ACETATE
     Indication: DACRYOSTENOSIS ACQUIRED
     Route: 047
  2. SULFACETAMIDE SODIUM. [Concomitant]
     Active Substance: SULFACETAMIDE SODIUM
     Indication: DACRYOSTENOSIS ACQUIRED
     Route: 047

REACTIONS (4)
  - Eye disorder [Recovered/Resolved]
  - Glaucoma [Recovered/Resolved]
  - Glaucomatous optic disc atrophy [Recovered/Resolved]
  - Product use issue [Recovered/Resolved]
